FAERS Safety Report 6551916-1 (Version None)
Quarter: 2010Q1

REPORT INFORMATION
  Report Type: 
  Country: None (occurrence: None)
  Receive Date: 20100126
  Receipt Date: 20100114
  Transmission Date: 20100710
  Serious: Yes (Other)
  Sender: FDA-Public Use
  Company Number: GB-ELI_LILLY_AND_COMPANY-GB201001003556

PATIENT
  Sex: Female
  Weight: 24 kg

DRUGS (2)
  1. PROZAC [Suspect]
     Dosage: 20 MG, PER 5ML SOLUTION
  2. FLUCONAZOLE [Concomitant]
     Dosage: 50 MG,/5ML
     Route: 048

REACTIONS (2)
  - ORAL MUCOSAL EXFOLIATION [None]
  - WRONG DRUG ADMINISTERED [None]
